FAERS Safety Report 6750948-8 (Version None)
Quarter: 2010Q2

REPORT INFORMATION
  Report Type: 
  Country: None (occurrence: None)
  Receive Date: 20100602
  Receipt Date: 20100524
  Transmission Date: 20101027
  Serious: Yes (Other)
  Sender: FDA-Public Use
  Company Number: US-SOLVAY-00210003067

PATIENT
  Age: 18982 Day
  Sex: Female

DRUGS (1)
  1. PROMETRIUM [Suspect]
     Indication: OESTROGEN REPLACEMENT THERAPY
     Dosage: DAILY DOSE:  UNKNOWN
     Route: 065

REACTIONS (1)
  - RENAL ARTERY HYPERPLASIA [None]
